FAERS Safety Report 14912974 (Version 1)
Quarter: 2018Q2

REPORT INFORMATION
  Report Type: Spontaneous
  Country: US (occurrence: US)
  Receive Date: 20180501
  Receipt Date: 20180501
  Transmission Date: 20180711
  Serious: Yes (Hospitalization)
  Sender: FDA-Public Use
  Company Number: None

PATIENT
  Sex: Female
  Weight: 94.7 kg

DRUGS (4)
  1. MERCAPTOPURINE. [Suspect]
     Active Substance: MERCAPTOPURINE
     Dates: end: 20180417
  2. CYCLOPHOSPHAMIDE. [Suspect]
     Active Substance: CYCLOPHOSPHAMIDE
     Dates: end: 20180417
  3. CYTARABINE. [Suspect]
     Active Substance: CYTARABINE
     Dates: end: 20180418
  4. METHOTREXATE. [Suspect]
     Active Substance: METHOTREXATE
     Dates: end: 20180418

REACTIONS (6)
  - Abdominal pain [None]
  - Nausea [None]
  - Gallbladder enlargement [None]
  - Cholestasis [None]
  - Vomiting [None]
  - Cholelithiasis [None]

NARRATIVE: CASE EVENT DATE: 20180416
